FAERS Safety Report 5657535-3 (Version None)
Quarter: 2008Q1

REPORT INFORMATION
  Report Type: 
  Country: None (occurrence: None)
  Receive Date: 20080310
  Receipt Date: 20080227
  Transmission Date: 20080703
  Serious: Yes (Other)
  Sender: FDA-Public Use
  Company Number: PHBS2008EC02824

PATIENT
  Age: 76 Year
  Sex: Female

DRUGS (3)
  1. EXFORGE [Suspect]
     Indication: HYPERTENSION
     Dosage: 160/10 MG/DAY
     Route: 048
     Dates: start: 20071105, end: 20071108
  2. INSULIN [Concomitant]
  3. ASPIRIN [Concomitant]

REACTIONS (2)
  - HEADACHE [None]
  - HYPERTENSIVE CRISIS [None]
